FAERS Safety Report 4434187-1 (Version None)
Quarter: 2004Q3

REPORT INFORMATION
  Report Type: 
  Country: None (occurrence: None)
  Receive Date: 20040825
  Receipt Date: 20040812
  Transmission Date: 20050211
  Serious: Yes (Hospitalization)
  Sender: FDA-Public Use
  Company Number: 04-0043 PO FOLLOW UP 2

PATIENT
  Age: 82 Year
  Sex: Female

DRUGS (8)
  1. PARKEMED (MEFANAMIC ACID) / PONSTEL NDA 15-034 [Suspect]
     Indication: RIB FRACTURE
     Dosage: 500MG, TID, PO
     Route: 048
     Dates: start: 20040609, end: 20040614
  2. DIAMICRON (GLICLAZIDE) [Suspect]
     Dates: end: 20040614
  3. MARCUMAR [Suspect]
     Dosage: PO
     Route: 048
  4. OMEPRAZOLE [Concomitant]
  5. TAMOXIFEN CITRATE [Concomitant]
  6. ENALAPRIL MALEATE [Concomitant]
  7. LEVOTHYROXINE SODIUM [Concomitant]
  8. MADOPAR (LEVODOPA) [Concomitant]

REACTIONS (14)
  - BLOOD CREATINE PHOSPHOKINASE INCREASED [None]
  - BLOOD UREA INCREASED [None]
  - COAGULOPATHY [None]
  - DRUG INTERACTION [None]
  - HAEMATOCRIT DECREASED [None]
  - HAEMOGLOBIN DECREASED [None]
  - HYPOGLYCAEMIA [None]
  - INTERNATIONAL NORMALISED RATIO INCREASED [None]
  - LABORATORY TEST ABNORMAL [None]
  - RED BLOOD CELL COUNT DECREASED [None]
  - RED BLOOD CELL SEDIMENTATION RATE INCREASED [None]
  - RIB FRACTURE [None]
  - URINARY TRACT INFECTION [None]
  - WHITE BLOOD CELL COUNT INCREASED [None]
